FAERS Safety Report 7364883-8 (Version None)
Quarter: 2011Q1

REPORT INFORMATION
  Report Type: 
  Country: None (occurrence: None)
  Receive Date: 20110316
  Receipt Date: 20110316
  Transmission Date: 20110831
  Serious: Yes (Life-Threatening)
  Sender: FDA-Public Use
  Company Number: None

PATIENT
  Sex: Female
  Weight: 57.2 kg

DRUGS (2)
  1. CARBOPLATIN [Suspect]
     Indication: NON-SMALL CELL LUNG CANCER
     Dosage: AUC-6 D1 EVERY 21 DAYS
     Dates: start: 20110216, end: 20110216
  2. AVASTIN [Suspect]

REACTIONS (1)
  - PULMONARY EMBOLISM [None]
